FAERS Safety Report 23749709 (Version 2)
Quarter: 2025Q1

REPORT INFORMATION
  Report Type: Report from Study
  Country: US (occurrence: US)
  Receive Date: 20240416
  Receipt Date: 20250318
  Transmission Date: 20250408
  Serious: Yes (Hospitalization)
  Sender: TAKEDA
  Company Number: US-TAKEDA-2024TUS035626

PATIENT
  Age: 29 Year
  Sex: Female

DRUGS (1)
  1. VELAGLUCERASE ALFA [Suspect]
     Active Substance: VELAGLUCERASE ALFA
     Indication: Gaucher^s disease
     Dosage: 2400 INTERNATIONAL UNIT, 1/WEEK
     Dates: start: 202403

REACTIONS (2)
  - Lower limb fracture [Unknown]
  - Food poisoning [Unknown]

NARRATIVE: CASE EVENT DATE: 20240405
